FAERS Safety Report 7426105-9 (Version None)
Quarter: 2011Q2

REPORT INFORMATION
  Report Type: 
  Country: None (occurrence: None)
  Receive Date: 20110420
  Receipt Date: 20110413
  Transmission Date: 20111010
  Serious: Yes (Hospitalization, Other)
  Sender: FDA-Public Use
  Company Number: PHEH2010US03481

PATIENT
  Sex: Female

DRUGS (28)
  1. ADALAT [Concomitant]
     Dosage: UNK
  2. AVANDAMET [Concomitant]
  3. VYTORIN [Concomitant]
  4. MOBIC [Concomitant]
  5. DULCOLAX [Concomitant]
  6. TIAZAC [Concomitant]
  7. NAPROSYN [Concomitant]
     Dosage: UNK
  8. ELAVIL [Concomitant]
  9. DEPO-PROVERA [Concomitant]
  10. PREMARIN [Concomitant]
  11. LORCET-HD [Concomitant]
  12. VITAMIN D [Concomitant]
  13. ZELNORM [Suspect]
     Dosage: UNK
     Dates: start: 20040101
  14. ALBUTEROL SULFATE AUTOHALER [Concomitant]
     Indication: ASTHMA
     Dosage: UNK
  15. ADVAIR HFA [Concomitant]
     Indication: ASTHMA
  16. ULTRAM [Concomitant]
  17. HUMULIN R [Concomitant]
     Indication: TYPE 2 DIABETES MELLITUS
     Dosage: UNK
  18. NEXIUM [Concomitant]
  19. FLEXERIL [Concomitant]
     Dosage: UNK
  20. ZESTORETIC [Concomitant]
  21. PAXIL [Concomitant]
     Indication: DEPRESSION
     Dosage: UNK
  22. TORADOL [Concomitant]
     Dosage: UNK
  23. ATIVAN [Concomitant]
  24. PREDNISONE [Concomitant]
     Dosage: UNK
  25. REGLAN [Concomitant]
  26. PROMETHAZINE [Concomitant]
  27. NUBAIN [Concomitant]
  28. LYRICA [Concomitant]

REACTIONS (8)
  - LUNG DISORDER [None]
  - SYNCOPE [None]
  - HYPOTENSION [None]
  - ASTHENIA [None]
  - CHEST PAIN [None]
  - PAIN [None]
  - INJURY [None]
  - POLYARTHRITIS [None]
